FAERS Safety Report 4369692-X (Version None)
Quarter: 2004Q2

REPORT INFORMATION
  Report Type: 
  Country: None (occurrence: None)
  Receive Date: 20040527
  Receipt Date: 20040517
  Transmission Date: 20050107
  Serious: Yes (Death, Hospitalization, Other)
  Sender: FDA-Public Use
  Company Number: 2004-04-1658

PATIENT
  Age: 60 Year
  Sex: Female

DRUGS (3)
  1. TEMODAL [Suspect]
     Indication: METASTATIC MALIGNANT MELANOMA
     Dosage: 320 MG QD ORAL
     Route: 048
     Dates: start: 20040310, end: 20040326
  2. CISPLATIN [Suspect]
     Indication: METASTATIC MALIGNANT MELANOMA
     Dosage: 120 MG INTRAVENOUS
     Route: 042
     Dates: start: 20040310, end: 20040310
  3. INTERLEUKIN-2 INJECTABLE [Suspect]
     Indication: METASTATIC MALIGNANT MELANOMA
     Dosage: INTRAVENOUS
     Route: 042

REACTIONS (8)
  - ARRHYTHMIA [None]
  - CIRCULATORY COLLAPSE [None]
  - COMA [None]
  - DYSPNOEA [None]
  - MYOCARDIAL INFARCTION [None]
  - PANCYTOPENIA [None]
  - PULMONARY EMBOLISM [None]
  - SUDDEN DEATH [None]
